FAERS Safety Report 5938832-0 (Version None)
Quarter: 2008Q4

REPORT INFORMATION
  Report Type: 
  Country: None (occurrence: None)
  Receive Date: 20081103
  Receipt Date: 20081028
  Transmission Date: 20090506
  Serious: Yes (Other)
  Sender: FDA-Public Use
  Company Number: US-ELI_LILLY_AND_COMPANY-US200810002777

PATIENT
  Sex: Male
  Weight: 73.93 kg

DRUGS (3)
  1. STRATTERA [Suspect]
     Indication: ATTENTION DEFICIT/HYPERACTIVITY DISORDER
     Dosage: 100 MG, DAILY (1/D)
     Route: 048
     Dates: start: 20070730
  2. FISH OIL [Concomitant]
     Dosage: UNK, UNKNOWN
     Route: 065
     Dates: start: 20080225
  3. OXYCONTIN [Concomitant]
     Indication: DRUG ABUSE
     Dosage: UNK, UNKNOWN
     Route: 065

REACTIONS (3)
  - ALANINE AMINOTRANSFERASE INCREASED [None]
  - ASPARTATE AMINOTRANSFERASE INCREASED [None]
  - SECONDARY HYPOGONADISM [None]
